FAERS Safety Report 8113351-4 (Version None)
Quarter: 2012Q1

REPORT INFORMATION
  Report Type: 
  Country: None (occurrence: None)
  Receive Date: 20120203
  Receipt Date: 20120131
  Transmission Date: 20120608
  Serious: Yes (Life-Threatening, Hospitalization, Other)
  Sender: FDA-Public Use
  Company Number: PHEH2012US002671

PATIENT
  Sex: Female
  Weight: 75 kg

DRUGS (2)
  1. GLEEVEC [Suspect]
     Indication: POLYCYTHAEMIA VERA
     Dosage: 400 MG, DAILY
     Route: 048
     Dates: start: 20010725, end: 20111009
  2. INTRON [Concomitant]

REACTIONS (3)
  - MESENTERIC ARTERY THROMBOSIS [None]
  - NEOPLASM MALIGNANT [None]
  - NEOPLASM PROGRESSION [None]
